FAERS Safety Report 6492925-0 (Version None)
Quarter: 2009Q4

REPORT INFORMATION
  Report Type: 
  Country: None (occurrence: None)
  Receive Date: 20091214
  Receipt Date: 20091204
  Transmission Date: 20100525
  Serious: Yes (Other)
  Sender: FDA-Public Use
  Company Number: PHHY2009CH50980

PATIENT
  Sex: Female

DRUGS (2)
  1. ACLASTA [Suspect]
     Indication: OSTEOPOROSIS
     Dosage: 5 MG, UNK
     Route: 042
     Dates: start: 20090105
  2. CONDROSULF [Concomitant]

REACTIONS (3)
  - DERMATITIS BULLOUS [None]
  - PYREXIA [None]
  - STEVENS-JOHNSON SYNDROME [None]
